FAERS Safety Report 5230128-8 (Version None)
Quarter: 2007Q1

REPORT INFORMATION
  Report Type: 
  Country: None (occurrence: None)
  Receive Date: 20070206
  Receipt Date: 20060728
  Transmission Date: 20070707
  Serious: No
  Sender: FDA-Public Use
  Company Number: US-GLAXOSMITHKLINE-A0613954A

PATIENT
  Age: 34 Year
  Sex: Female

DRUGS (2)
  1. PAXIL CR [Suspect]
     Indication: DEPRESSION
     Dosage: 25MG PER DAY
     Route: 048
     Dates: start: 20040801, end: 20060723
  2. NO CONCURRENT MEDICATION [Concomitant]

REACTIONS (3)
  - DIZZINESS [None]
  - MENSTRUATION IRREGULAR [None]
  - PREGNANCY [None]
